FAERS Safety Report 6413279-1 (Version None)
Quarter: 2009Q4

REPORT INFORMATION
  Report Type: 
  Country: None (occurrence: None)
  Receive Date: 20091022
  Receipt Date: 20091022
  Transmission Date: 20100525
  Serious: Yes (Hospitalization, Other)
  Sender: FDA-Public Use
  Company Number: None

PATIENT
  Age: 84 Year
  Sex: Male
  Weight: 77.1115 kg

DRUGS (5)
  1. ZYVOX [Suspect]
     Indication: ARTHROPOD BITE
     Dosage: 1 TABLET TWICE DAILY PO
     Route: 048
     Dates: start: 20091023, end: 20091023
  2. SEPTRA DS [Concomitant]
  3. AMOXICILLIN [Concomitant]
  4. ASPIRIN [Concomitant]
  5. MOTRIL [Concomitant]

REACTIONS (2)
  - DIARRHOEA HAEMORRHAGIC [None]
  - RED BLOOD CELL COUNT DECREASED [None]
